FAERS Safety Report 6674681-6 (Version None)
Quarter: 2010Q2

REPORT INFORMATION
  Report Type: 
  Country: None (occurrence: None)
  Receive Date: 20100409
  Receipt Date: 20100325
  Transmission Date: 20101027
  Serious: Yes (Other)
  Sender: FDA-Public Use
  Company Number: ES-ELI_LILLY_AND_COMPANY-ES201003007972

PATIENT
  Sex: Female
  Weight: 66 kg

DRUGS (8)
  1. FORTEO [Suspect]
     Indication: OSTEOARTHRITIS
     Dosage: 20 UG, DAILY (1/D)
     Route: 058
     Dates: start: 20081120
  2. VENORUTON [Concomitant]
     Dosage: UNK, DAILY (1/D)
     Route: 048
  3. MYOLASTAN [Concomitant]
     Dosage: UNK, DAILY (1/D)
     Route: 048
  4. ASPIRIN [Concomitant]
     Dosage: UNK, DAILY (1/D)
     Route: 048
  5. SEGURIL [Concomitant]
     Dosage: UNK, DAILY (1/D)
     Route: 048
  6. MONOLITUM [Concomitant]
     Dosage: UNK, DAILY (1/D)
     Route: 048
  7. TRANQUINAL [Concomitant]
     Dosage: UNK, DAILY (1/D)
     Route: 048
  8. OSTEOPOR [Concomitant]
     Dosage: UNK, UNKNOWN
     Route: 048

REACTIONS (6)
  - ANGINA PECTORIS [None]
  - BONE PAIN [None]
  - CATHETERISATION CARDIAC [None]
  - MUSCULOSKELETAL STIFFNESS [None]
  - OFF LABEL USE [None]
  - UPPER LIMB FRACTURE [None]
